FAERS Safety Report 5754392-1 (Version None)
Quarter: 2008Q2

REPORT INFORMATION
  Report Type: 
  Country: None (occurrence: None)
  Receive Date: 20080530
  Receipt Date: 20080521
  Transmission Date: 20081010
  Serious: No
  Sender: FDA-Public Use
  Company Number: DE-PFIZER INC-2008031155

PATIENT
  Sex: Male
  Weight: 88 kg

DRUGS (9)
  1. INSPRA [Suspect]
     Indication: CARDIAC FAILURE
     Route: 048
  2. INSPRA [Suspect]
     Indication: IMPLANTABLE DEFIBRILLATOR INSERTION
  3. ASPIRIN [Concomitant]
  4. METOPROLOL SUCCINATE [Concomitant]
  5. SIMVASTATIN [Concomitant]
  6. TOREM [Concomitant]
  7. IDEOS [Concomitant]
  8. CARBIMAZOLE [Concomitant]
  9. DELIX [Concomitant]

REACTIONS (1)
  - BLOOD CREATININE INCREASED [None]
